FAERS Safety Report 11229378 (Version 2)
Quarter: 2015Q3

REPORT INFORMATION
  Report Type: Report from Study
  Country: BR (occurrence: BR)
  Receive Date: 20150630
  Receipt Date: 20150713
  Transmission Date: 20151125
  Serious: Yes (Hospitalization, Other)
  Sender: FDA-Public Use
  Company Number: PHHY2015BR078160

PATIENT
  Sex: Male
  Weight: 93.5 kg

DRUGS (2)
  1. SANDOSTATIN LAR DEPOT [Suspect]
     Active Substance: OCTREOTIDE ACETATE
     Indication: ACROMEGALY
     Dosage: UNK, QMO
     Route: 065
     Dates: start: 20141215, end: 20150511
  2. LEVOID [Suspect]
     Active Substance: LEVOTHYROXINE
     Indication: PRODUCT USED FOR UNKNOWN INDICATION
     Dosage: 1 TABLET OF 100 UG AND 1 TABLET OF 38 UG
     Route: 065

REACTIONS (6)
  - Chromaturia [Recovered/Resolved]
  - Urine output increased [Recovered/Resolved]
  - Face injury [Recovered/Resolved]
  - Therapeutic response unexpected [Unknown]
  - Delirium [Unknown]
  - Nasal discomfort [Recovered/Resolved]
